FAERS Safety Report 21773147 (Version 2)
Quarter: 2022Q4

REPORT INFORMATION
  Report Type: Report from Study
  Country: US (occurrence: US)
  Receive Date: 20221223
  Receipt Date: 20221226
  Transmission Date: 20230113
  Serious: No
  Sender: FDA-Public Use
  Company Number: US-002147023-NVSC2022US292762

PATIENT
  Sex: Male

DRUGS (1)
  1. TREPROSTINIL [Suspect]
     Active Substance: TREPROSTINIL
     Indication: Pulmonary arterial hypertension
     Dosage: 87 NG/KG/MIN, CONT
     Route: 042
     Dates: start: 20200514

REACTIONS (2)
  - Feeling abnormal [Unknown]
  - Device alarm issue [Recovered/Resolved]
